FAERS Safety Report 10426075 (Version 2)
Quarter: 2014Q4

REPORT INFORMATION
  Report Type: Report from Study
  Country: JP (occurrence: JP)
  Receive Date: 20140903
  Receipt Date: 20141111
  Transmission Date: 20150528
  Serious: Yes (Hospitalization)
  Sender: FDA-Public Use
  Company Number: JP-BRISTOL-MYERS SQUIBB COMPANY-21347927

PATIENT
  Age: 68 Year
  Sex: Male

DRUGS (11)
  1. VOGLIBOSE [Concomitant]
     Active Substance: VOGLIBOSE
  2. BAYASPIRIN [Concomitant]
     Active Substance: ASPIRIN
  3. CINACALCET HCL [Concomitant]
     Active Substance: CINACALCET HYDROCHLORIDE
  4. LANSOPRAZOLE. [Concomitant]
     Active Substance: LANSOPRAZOLE
  5. URSO [Concomitant]
     Active Substance: URSODIOL
  6. ONGLYZA [Suspect]
     Active Substance: SAXAGLIPTIN HYDROCHLORIDE
     Indication: TYPE 2 DIABETES MELLITUS
     Dosage: TABLET,ONGOING
     Route: 048
     Dates: start: 20140213
  7. EPADEL [Concomitant]
     Active Substance: ICOSAPENT
  8. DILTIAZEM HCL [Concomitant]
     Active Substance: DILTIAZEM HYDROCHLORIDE
  9. FUROSEMIDE. [Concomitant]
     Active Substance: FUROSEMIDE
  10. ARTIST [Concomitant]
     Active Substance: CARVEDILOL
  11. ALLOPURINOL. [Concomitant]
     Active Substance: ALLOPURINOL

REACTIONS (4)
  - Bronchitis [Recovering/Resolving]
  - Myofascial pain syndrome [Recovering/Resolving]
  - Infective spondylitis [Recovering/Resolving]
  - Intervertebral discitis [Recovering/Resolving]

NARRATIVE: CASE EVENT DATE: 2014
